FAERS Safety Report 18860995 (Version 1)
Quarter: 2021Q1

REPORT INFORMATION
  Report Type: Report from Study
  Country: US (occurrence: US)
  Receive Date: 20210208
  Receipt Date: 20210208
  Transmission Date: 20210420
  Serious: Yes (Other)
  Sender: FDA-Public Use
  Company Number: NVSC2021US022008

PATIENT
  Age: 69 Year
  Sex: Female

DRUGS (2)
  1. ENTRESTO [Suspect]
     Active Substance: SACUBITRIL\VALSARTAN
     Dosage: 100 MG, BID
     Route: 048
     Dates: start: 20210117
  2. ENTRESTO [Suspect]
     Active Substance: SACUBITRIL\VALSARTAN
     Indication: PRODUCT USED FOR UNKNOWN INDICATION
     Dosage: 100 MG, BID
     Route: 048
     Dates: start: 202001, end: 20210116

REACTIONS (10)
  - Depression suicidal [Recovering/Resolving]
  - Back pain [Unknown]
  - Headache [Unknown]
  - Abdominal discomfort [Unknown]
  - Arthralgia [Unknown]
  - Pain [Unknown]
  - Choking [Recovering/Resolving]
  - Cardiac dysfunction [Recovering/Resolving]
  - Decreased appetite [Unknown]
  - Dysphagia [Recovering/Resolving]

NARRATIVE: CASE EVENT DATE: 202001
